FAERS Safety Report 8780016 (Version 1)
Quarter: 2012Q4

REPORT INFORMATION
  Report Type: Spontaneous
  Country: US (occurrence: None)
  Receive Date: 20120831
  Receipt Date: 20120831
  Transmission Date: 20130627
  Serious: Yes (Death, Hospitalization)
  Sender: FDA-Public Use
  Company Number: None

PATIENT
  Age: 62 Year
  Sex: Female
  Weight: 62.19 kg

DRUGS (2)
  1. ZORTRESS [Suspect]
     Route: 048
     Dates: start: 20120619, end: 20120726
  2. MYFORTIC [Suspect]
     Route: 048
     Dates: start: 20060101, end: 20120726

REACTIONS (10)
  - Abdominal pain [None]
  - Small intestinal obstruction [None]
  - Impaired healing [None]
  - Abdominal adhesions [None]
  - Respiratory failure [None]
  - Mental status changes [None]
  - Lower gastrointestinal haemorrhage [None]
  - Enterocutaneous fistula [None]
  - Hypotension [None]
  - Acinetobacter test positive [None]
